FAERS Safety Report 7223794-9 (Version None)
Quarter: 2011Q1

REPORT INFORMATION
  Report Type: 
  Country: None (occurrence: None)
  Receive Date: 20110112
  Receipt Date: 20101129
  Transmission Date: 20110831
  Serious: No
  Sender: FDA-Public Use
  Company Number: US-ALLERGAN-1015332US

PATIENT
  Sex: Male

DRUGS (2)
  1. REFRESH PLUS [Concomitant]
     Indication: DRY EYE
  2. RESTASIS [Suspect]
     Indication: DRY EYE

REACTIONS (3)
  - FOREIGN BODY SENSATION IN EYES [None]
  - DRY EYE [None]
  - EYE IRRITATION [None]
